FAERS Safety Report 13260756 (Version 2)
Quarter: 2017Q3

REPORT INFORMATION
  Report Type: Report from Study
  Country: US (occurrence: US)
  Receive Date: 20170222
  Receipt Date: 20170727
  Transmission Date: 20171127
  Serious: Yes (Other)
  Sender: FDA-Public Use
  Company Number: US-JAZZ-2016-US-023607

PATIENT
  Sex: Female

DRUGS (19)
  1. XYREM [Suspect]
     Active Substance: SODIUM OXYBATE
     Indication: NARCOLEPSY
     Dosage: 2.25 G, BID
     Route: 048
     Dates: start: 201204, end: 201205
  2. GABAPENTIN. [Concomitant]
     Active Substance: GABAPENTIN
  3. COREG [Concomitant]
     Active Substance: CARVEDILOL
  4. XYREM [Suspect]
     Active Substance: SODIUM OXYBATE
     Dosage: 3.75 G, QD FIRST DOSE
     Dates: start: 201606
  5. MAGNESIUM [Concomitant]
     Active Substance: MAGNESIUM
  6. PROTONIX                           /00661201/ [Concomitant]
     Active Substance: OMEPRAZOLE
  7. XYREM [Suspect]
     Active Substance: SODIUM OXYBATE
     Dosage: 3 G, QD SECOND DOSE
     Dates: start: 201606
  8. FLAXSEED [Concomitant]
     Active Substance: FLAX SEED
  9. LEVSIN [Concomitant]
     Active Substance: HYOSCYAMINE SULFATE
  10. RELPAX [Concomitant]
     Active Substance: ELETRIPTAN HYDROBROMIDE
  11. ALTACE [Concomitant]
     Active Substance: RAMIPRIL
  12. XYREM [Suspect]
     Active Substance: SODIUM OXYBATE
     Indication: CATAPLEXY
     Dosage: DOSE ADJUSTMENT
     Route: 048
     Dates: start: 201205, end: 201606
  13. VITAMIN C [Concomitant]
     Active Substance: ASCORBIC ACID
  14. MIRENA [Concomitant]
     Active Substance: LEVONORGESTREL
  15. LYSINE [Concomitant]
     Active Substance: LYSINE
  16. EFFEXOR [Concomitant]
     Active Substance: VENLAFAXINE HYDROCHLORIDE
  17. VENTOLIN [Concomitant]
     Active Substance: ALBUTEROL SULFATE
  18. CONCERTA [Concomitant]
     Active Substance: METHYLPHENIDATE HYDROCHLORIDE
  19. SINGULAIR [Concomitant]
     Active Substance: MONTELUKAST SODIUM

REACTIONS (2)
  - Gestational diabetes [Recovering/Resolving]
  - Exposure during pregnancy [Unknown]
